FAERS Safety Report 20410395 (Version 2)
Quarter: 2022Q1

REPORT INFORMATION
  Report Type: Spontaneous
  Country: IT (occurrence: IT)
  Receive Date: 20220201
  Receipt Date: 20220214
  Transmission Date: 20220423
  Serious: Yes (Hospitalization)
  Sender: FDA-Public Use
  Company Number: None

PATIENT
  Age: 71 Year
  Sex: Female

DRUGS (7)
  1. CASPOFUNGIN [Suspect]
     Active Substance: CASPOFUNGIN
     Indication: Antifungal treatment
     Dosage: ON DAY 1
     Route: 065
  2. PIPERACILLIN SODIUM\TAZOBACTAM SODIUM [Suspect]
     Active Substance: PIPERACILLIN SODIUM\TAZOBACTAM SODIUM
     Indication: Antibiotic therapy
     Dosage: THREE TIMES A DAY
     Route: 065
     Dates: start: 202009, end: 202009
  3. CASPOFUNGIN [Suspect]
     Active Substance: CASPOFUNGIN
     Indication: Antifungal treatment
     Dosage: ON DAY 1
     Route: 065
     Dates: start: 2020
  4. MEROPENEM [Suspect]
     Active Substance: MEROPENEM
     Indication: Antibiotic therapy
     Dosage: THREE TIMES A DAY
     Route: 065
     Dates: start: 2020, end: 2020
  5. MEROPENEM [Concomitant]
     Active Substance: MEROPENEM
     Indication: Antibiotic therapy
     Dosage: 1 G, TID
     Route: 065
  6. MEROPENEM [Concomitant]
     Active Substance: MEROPENEM
     Indication: Pyrexia
     Dosage: 1 G, TID
     Route: 065
  7. CASPOFUNGIN [Suspect]
     Active Substance: CASPOFUNGIN
     Indication: Antifungal treatment
     Dosage: 50 MG, QD
     Route: 065

REACTIONS (6)
  - Fungaemia [Recovered/Resolved]
  - Pneumonia [Unknown]
  - Geotrichum infection [Recovered/Resolved]
  - Thrombocytopenia [Recovered/Resolved]
  - Fungal infection [Recovered/Resolved]
  - Neutropenia [Recovered/Resolved]

NARRATIVE: CASE EVENT DATE: 20200101
